FAERS Safety Report 16201441 (Version 1)
Quarter: 2019Q2

REPORT INFORMATION
  Report Type: Spontaneous
  Country: US (occurrence: US)
  Receive Date: 20190415
  Receipt Date: 20190415
  Transmission Date: 20190711
  Serious: Yes (Other)
  Sender: FDA-Public Use
  Company Number: None

PATIENT
  Age: 83 Year
  Sex: Female
  Weight: 68.49 kg

DRUGS (4)
  1. IBRANCE [Suspect]
     Active Substance: PALBOCICLIB
     Indication: COLON CANCER
     Dosage: ?          OTHER FREQUENCY:QD 3WK ON 1 WK OFF;?
     Route: 048
     Dates: start: 20190225, end: 20190415
  2. CAPECITABINE. [Suspect]
     Active Substance: CAPECITABINE
     Indication: COLON CANCER
     Dosage: ?          OTHER FREQUENCY:BID EVERY OTHER WK;?
     Route: 048
     Dates: start: 20190225, end: 20190415
  3. DOXYCYCLINE. [Concomitant]
     Active Substance: DOXYCYCLINE
  4. MAGIC MOUTH WASH [Concomitant]
     Active Substance: ALUMINUM HYDROXIDE\DIMETHICONE\DIPHENHYDRAMINE\LIDOCAINE\MAGNESIUM HYDROXIDE

REACTIONS (2)
  - Hospice care [None]
  - Therapy cessation [None]

NARRATIVE: CASE EVENT DATE: 20190415
